FAERS Safety Report 4364613-8 (Version None)
Quarter: 2004Q2

REPORT INFORMATION
  Report Type: 
  Country: None (occurrence: None)
  Receive Date: 20040521
  Receipt Date: 20040514
  Transmission Date: 20050107
  Serious: Yes (Other)
  Sender: FDA-Public Use
  Company Number: 200403795

PATIENT
  Sex: Female

DRUGS (2)
  1. FLEXERIL [Suspect]
     Dosage: 10 MG PRN
  2. ULTRAM [Concomitant]

REACTIONS (2)
  - DEAFNESS UNILATERAL [None]
  - SUDDEN HEARING LOSS [None]
